FAERS Safety Report 16643690 (Version 1)
Quarter: 2019Q3

REPORT INFORMATION
  Report Type: Spontaneous
  Country: US (occurrence: US)
  Receive Date: 20190729
  Receipt Date: 20190729
  Transmission Date: 20191004
  Serious: No
  Sender: FDA-Public Use
  Company Number: US-PRINSTON PHARMACEUTICAL INC.-2019PRN00050

PATIENT
  Sex: Female

DRUGS (3)
  1. UNSPECIFIED ^STATIN^ [Concomitant]
     Dosage: UNK
  2. LOSARTAN POTASSIUM. [Suspect]
     Active Substance: LOSARTAN POTASSIUM
     Dosage: UNK
  3. UNSPECIFIED ^STATIN^ [Concomitant]
     Dosage: UNK

REACTIONS (5)
  - Swelling face [Unknown]
  - Urticaria [Recovered/Resolved]
  - Skin discolouration [Unknown]
  - Erythema [Recovered/Resolved]
  - Bronchitis [Unknown]

NARRATIVE: CASE EVENT DATE: 2018
